FAERS Safety Report 25494883 (Version 1)
Quarter: 2025Q2

REPORT INFORMATION
  Report Type: Spontaneous
  Country: US (occurrence: US)
  Receive Date: 20250630
  Receipt Date: 20250630
  Transmission Date: 20250717
  Serious: No
  Sender: PFIZER
  Company Number: US-PFIZER INC-202500130295

PATIENT
  Age: 84 Year
  Sex: Male

DRUGS (2)
  1. VYNDAQEL [Suspect]
     Active Substance: TAFAMIDIS MEGLUMINE
     Indication: Cardiac amyloidosis
     Dosage: 80 MG, DAILY
     Dates: start: 20250613
  2. CAFFEINE [Suspect]
     Active Substance: CAFFEINE

REACTIONS (2)
  - Aura [Recovered/Resolved]
  - Visual brightness [Recovered/Resolved]

NARRATIVE: CASE EVENT DATE: 20250613
